FAERS Safety Report 9916385 (Version 1)
Quarter: 2014Q1

REPORT INFORMATION
  Report Type: Report from Study
  Country: TR (occurrence: TR)
  Receive Date: 20140221
  Receipt Date: 20140221
  Transmission Date: 20141002
  Serious: Yes (Other)
  Sender: FDA-Public Use
  Company Number: TR-US-EMD SERONO, INC.-7269930

PATIENT
  Sex: Female
  Weight: 62 kg

DRUGS (1)
  1. REBIF [Suspect]
     Indication: MULTIPLE SCLEROSIS

REACTIONS (3)
  - Cerebrovascular accident [Unknown]
  - Intracardiac thrombus [Unknown]
  - Arrhythmia [Unknown]
